FAERS Safety Report 23472058 (Version 2)
Quarter: 2024Q4

REPORT INFORMATION
  Report Type: Spontaneous
  Country: US (occurrence: US)
  Receive Date: 20240202
  Receipt Date: 20241230
  Transmission Date: 20250115
  Serious: No
  Sender: BIOMARIN
  Company Number: US-SA-SAC20240124001382

PATIENT

DRUGS (2)
  1. ALDURAZYME [Suspect]
     Active Substance: LARONIDASE
     Indication: Mucopolysaccharidosis I
     Dosage: 17 MG, QW
     Route: 042
     Dates: start: 202305
  2. ALDURAZYME [Suspect]
     Active Substance: LARONIDASE
     Dosage: 20 MILLIGRAM, QW
     Route: 042

REACTIONS (1)
  - Influenza [Unknown]

NARRATIVE: CASE EVENT DATE: 20240108
